FAERS Safety Report 21716139 (Version 1)
Quarter: 2022Q4

REPORT INFORMATION
  Report Type: Spontaneous
  Country: US (occurrence: US)
  Receive Date: 20221212
  Receipt Date: 20221212
  Transmission Date: 20230113
  Serious: No
  Sender: FDA-Public Use
  Company Number: US-GBT-013965

PATIENT
  Sex: Female

DRUGS (2)
  1. OXBRYTA [Suspect]
     Active Substance: VOXELOTOR
     Indication: Sickle cell disease
     Route: 048
     Dates: start: 20220206
  2. HYDROXYUREA [Concomitant]
     Active Substance: HYDROXYUREA
     Indication: Vitamin D decreased
     Dates: start: 20220623

REACTIONS (3)
  - Sickle cell anaemia with crisis [Unknown]
  - Vitamin D decreased [Unknown]
  - Haemoglobin decreased [Unknown]
